FAERS Safety Report 12460404 (Version 10)
Quarter: 2017Q3

REPORT INFORMATION
  Report Type: Report from Study
  Country: US (occurrence: US)
  Receive Date: 20160613
  Receipt Date: 20170828
  Transmission Date: 20171127
  Serious: Yes (Hospitalization, Other)
  Sender: FDA-Public Use
  Company Number: US-JNJFOC-20160607127

PATIENT
  Age: 90 Year
  Sex: Male

DRUGS (24)
  1. IMBRUVICA [Suspect]
     Active Substance: IBRUTINIB
     Indication: CHRONIC LYMPHOCYTIC LEUKAEMIA
     Route: 048
     Dates: start: 20161125
  2. ZOFRAN [Concomitant]
     Active Substance: ONDANSETRON HYDROCHLORIDE
  3. LASIX [Concomitant]
     Active Substance: FUROSEMIDE
  4. IMBRUVICA [Suspect]
     Active Substance: IBRUTINIB
     Indication: CHRONIC LYMPHOCYTIC LEUKAEMIA
     Route: 048
     Dates: start: 201605
  5. MIRALAX [Concomitant]
     Active Substance: POLYETHYLENE GLYCOL 3350
  6. NASACORT [Concomitant]
     Active Substance: TRIAMCINOLONE ACETONIDE
  7. CAPTOPRIL. [Concomitant]
     Active Substance: CAPTOPRIL
  8. IMBRUVICA [Suspect]
     Active Substance: IBRUTINIB
     Indication: CHRONIC LYMPHOCYTIC LEUKAEMIA
     Route: 048
     Dates: start: 20160526
  9. PRILOSEC [Concomitant]
     Active Substance: OMEPRAZOLE MAGNESIUM
  10. COMPAZINE [Concomitant]
     Active Substance: PROCHLORPERAZINE MALEATE
  11. FLONASE [Concomitant]
     Active Substance: FLUTICASONE PROPIONATE
  12. VENTOLIN [Concomitant]
     Active Substance: ALBUTEROL SULFATE
  13. SYNTHROID [Concomitant]
     Active Substance: LEVOTHYROXINE SODIUM
  14. LOVASTATIN. [Concomitant]
     Active Substance: LOVASTATIN
  15. TOPROL XL [Concomitant]
     Active Substance: METOPROLOL SUCCINATE
  16. CENTRUM SILVER [Concomitant]
     Active Substance: MINERALS\VITAMINS
  17. SENOKOT [Concomitant]
     Active Substance: SENNOSIDES
  18. FLOMAX [Concomitant]
     Active Substance: TAMSULOSIN HYDROCHLORIDE
  19. EFUDEX [Concomitant]
     Active Substance: FLUOROURACIL
  20. IBUPROFEN. [Concomitant]
     Active Substance: IBUPROFEN
  21. IMDUR [Concomitant]
     Active Substance: ISOSORBIDE MONONITRATE
  22. ACETAMINOPHEN. [Concomitant]
     Active Substance: ACETAMINOPHEN
  23. VITAMIN D3 [Concomitant]
     Active Substance: CHOLECALCIFEROL
  24. ANUSOL NOS [Concomitant]
     Active Substance: BALSAM PERU\BENZYL BENZOATE\BISMUTH HYDROXIDE\BISMUTH SUBGALLATE\HYDROCORTISONE ACETATE\ZINC OXIDE

REACTIONS (13)
  - Joint swelling [Recovered/Resolved]
  - Staphylococcal infection [Recovering/Resolving]
  - Urinary tract infection [Unknown]
  - Skin haemorrhage [Not Recovered/Not Resolved]
  - Peripheral swelling [Recovered/Resolved]
  - Blood count abnormal [Unknown]
  - Bacterial infection [Unknown]
  - Constipation [Unknown]
  - Chromaturia [Unknown]
  - Urticaria [Not Recovered/Not Resolved]
  - Device related infection [Recovering/Resolving]
  - Platelet count decreased [Not Recovered/Not Resolved]
  - Diarrhoea [Unknown]

NARRATIVE: CASE EVENT DATE: 2016
